FAERS Safety Report 11201514 (Version 1)
Quarter: 2015Q2

REPORT INFORMATION
  Report Type: Spontaneous
  Country: US (occurrence: None)
  Receive Date: 20150617
  Receipt Date: 20150617
  Transmission Date: 20150821
  Serious: Yes (Death)
  Sender: FDA-Public Use
  Company Number: SP09597

PATIENT
  Age: 72 Year
  Sex: Male

DRUGS (1)
  1. XIFAXAN [Suspect]
     Active Substance: RIFAXIMIN
     Indication: AUTOIMMUNE HEPATITIS
     Dosage: 2 IN 1 D, ORAL
     Route: 048

REACTIONS (4)
  - Septic shock [None]
  - Metabolic acidosis [None]
  - Respiratory failure [None]
  - Hepatic failure [None]

NARRATIVE: CASE EVENT DATE: 20150515
